FAERS Safety Report 4644239-9 (Version None)
Quarter: 2005Q2

REPORT INFORMATION
  Report Type: 
  Country: None (occurrence: None)
  Receive Date: 20050425
  Receipt Date: 20050407
  Transmission Date: 20051028
  Serious: Yes (Life-Threatening, Hospitalization, Disabling)
  Sender: FDA-Public Use
  Company Number: US-MERCK-0504USA01102

PATIENT
  Age: 54 Year
  Sex: Female

DRUGS (3)
  1. FOSAMAX [Suspect]
     Indication: OSTEOPOROSIS
     Route: 048
     Dates: start: 20050404
  2. LIPITOR [Concomitant]
     Route: 065
  3. ANALGESIC OR ANESTHETIC (UNSPECIFIED) [Concomitant]
     Route: 065

REACTIONS (6)
  - BREAST PAIN [None]
  - FLANK PAIN [None]
  - JOINT STIFFNESS [None]
  - OESOPHAGEAL DISCOMFORT [None]
  - OESOPHAGITIS [None]
  - PARAESTHESIA [None]
